FAERS Safety Report 18226388 (Version 1)
Quarter: 2020Q3

REPORT INFORMATION
  Report Type: Spontaneous
  Country: US (occurrence: US)
  Receive Date: 20200903
  Receipt Date: 20200903
  Transmission Date: 20201103
  Serious: Yes (Hospitalization, Other)
  Sender: FDA-Public Use
  Company Number: US-ROCHE-2668651

PATIENT
  Sex: Male

DRUGS (4)
  1. TAFINLAR [Concomitant]
     Active Substance: DABRAFENIB MESYLATE
     Indication: NEOPLASM MALIGNANT
  2. MEKINIST [Concomitant]
     Active Substance: TRAMETINIB DIMETHYL SULFOXIDE
  3. COTELLIC [Suspect]
     Active Substance: COBIMETINIB
     Indication: NEOPLASM MALIGNANT
     Dosage: ONGOING: NO
     Route: 048
  4. ZELBORAF [Suspect]
     Active Substance: VEMURAFENIB
     Indication: NEOPLASM MALIGNANT
     Dosage: ONGOING:NO
     Route: 065

REACTIONS (7)
  - Pain [Recovered/Resolved]
  - Ocular toxicity [Unknown]
  - Retinopathy [Unknown]
  - Cardiotoxicity [Unknown]
  - Hepatic enzyme increased [Recovered/Resolved]
  - Blindness unilateral [Recovered/Resolved]
  - Renal impairment [Recovered/Resolved]
